FAERS Safety Report 9699007 (Version 2)
Quarter: 2013Q4

REPORT INFORMATION
  Report Type: Spontaneous
  Country: US (occurrence: US)
  Receive Date: 20131120
  Receipt Date: 20131216
  Transmission Date: 20140711
  Serious: Yes (Disabling)
  Sender: FDA-Public Use
  Company Number: US-PERRIGO-13US011637

PATIENT
  Age: 43 Year
  Sex: Female
  Weight: 77.1 kg

DRUGS (1)
  1. MICONAZOLE NITRATE SUPP 1200 MG 109 737 [Suspect]
     Indication: VULVOVAGINAL MYCOTIC INFECTION
     Dosage: 1200 MG, SINGLE
     Route: 067
     Dates: start: 20131108, end: 20131108

REACTIONS (4)
  - Erythema [Recovered/Resolved]
  - Haemorrhage [Recovered/Resolved]
  - Burning sensation [Recovered/Resolved]
  - Vulvovaginal swelling [Recovering/Resolving]
